FAERS Safety Report 8097302-7 (Version None)
Quarter: 2012Q1

REPORT INFORMATION
  Report Type: 
  Country: None (occurrence: None)
  Receive Date: 20120128
  Receipt Date: 20110624
  Transmission Date: 20120608
  Serious: No
  Sender: FDA-Public Use
  Company Number: US-ABBOTT-11P-163-0835360-00

PATIENT
  Sex: Male

DRUGS (5)
  1. HUMIRA [Suspect]
     Indication: ANKYLOSING SPONDYLITIS
     Dosage: 1ST INJECTION
     Route: 058
     Dates: start: 20110624, end: 20110624
  2. METAXALONE [Suspect]
     Indication: ANKYLOSING SPONDYLITIS
     Route: 048
     Dates: start: 20110624
  3. ALCOHOL [Suspect]
     Indication: PRODUCT USED FOR UNKNOWN INDICATION
  4. ETODOLAC [Concomitant]
     Indication: ANKYLOSING SPONDYLITIS
     Route: 048
  5. MEDROL [Concomitant]
     Indication: ANKYLOSING SPONDYLITIS
     Dosage: DOSE PACK
     Dates: start: 20110601

REACTIONS (4)
  - OCULAR HYPERAEMIA [None]
  - ERYTHEMA [None]
  - SWELLING FACE [None]
  - HYPOAESTHESIA [None]
